FAERS Safety Report 7512402-5 (Version None)
Quarter: 2011Q2

REPORT INFORMATION
  Report Type: 
  Country: None (occurrence: None)
  Receive Date: 20110531
  Receipt Date: 20110519
  Transmission Date: 20111010
  Serious: Yes (Hospitalization)
  Sender: FDA-Public Use
  Company Number: BR-ASTRAZENECA-2011SE31585

PATIENT
  Age: 22283 Day
  Sex: Male

DRUGS (1)
  1. ATACAND [Suspect]
     Route: 048
     Dates: end: 20110509

REACTIONS (3)
  - HEADACHE [None]
  - MALAISE [None]
  - DYSPNOEA [None]
